FAERS Safety Report 12674283 (Version 1)
Quarter: 2016Q3

REPORT INFORMATION
  Report Type: Spontaneous
  Country: US (occurrence: US)
  Receive Date: 20160822
  Receipt Date: 20160822
  Transmission Date: 20161109
  Serious: Yes (Hospitalization)
  Sender: FDA-Public Use
  Company Number: US-IPCA LABORATORIES LIMITED-IPC201608-000677

PATIENT
  Age: 57 Year
  Sex: Female

DRUGS (1)
  1. WARFARIN [Suspect]
     Active Substance: WARFARIN
     Indication: ANTIPHOSPHOLIPID SYNDROME

REACTIONS (6)
  - Adrenal insufficiency [Unknown]
  - Sepsis [Recovering/Resolving]
  - Acute kidney injury [Unknown]
  - Adrenal haemorrhage [Unknown]
  - Acute respiratory failure [Recovering/Resolving]
  - Pneumonia [Recovering/Resolving]
